FAERS Safety Report 9915324 (Version 2)
Quarter: 2014Q1

REPORT INFORMATION
  Report Type: Spontaneous
  Country: US (occurrence: US)
  Receive Date: 20140221
  Receipt Date: 20140303
  Transmission Date: 20141002
  Serious: Yes (Other)
  Sender: FDA-Public Use
  Company Number: US-009507513-1402USA006859

PATIENT
  Age: 65 Year
  Sex: Female

DRUGS (6)
  1. NASONEX [Suspect]
     Dosage: 2 SPRAYS EACH NOSTRIL/ 2 TIMES DAILY
     Route: 045
     Dates: start: 201312
  2. PREVACID [Suspect]
  3. PLAQUENIL [Suspect]
  4. LOSARTAN POTASSIUM [Concomitant]
     Route: 048
  5. DILTIAZEM HYDROCHLORIDE [Concomitant]
  6. CIALIS [Concomitant]

REACTIONS (18)
  - Multiple fractures [Not Recovered/Not Resolved]
  - Oral surgery [Recovering/Resolving]
  - Sinus operation [Recovering/Resolving]
  - Oral infection [Not Recovered/Not Resolved]
  - Sinusitis [Recovering/Resolving]
  - Cough [Not Recovered/Not Resolved]
  - Respiratory tract haemorrhage [Not Recovered/Not Resolved]
  - Sinus headache [Not Recovered/Not Resolved]
  - Throat tightness [Not Recovered/Not Resolved]
  - Vomiting [Not Recovered/Not Resolved]
  - Increased upper airway secretion [Not Recovered/Not Resolved]
  - Increased viscosity of nasal secretion [Not Recovered/Not Resolved]
  - Dysphonia [Not Recovered/Not Resolved]
  - Dyspnoea [Not Recovered/Not Resolved]
  - Impaired healing [Not Recovered/Not Resolved]
  - Bone loss [Not Recovered/Not Resolved]
  - Nerve injury [Not Recovered/Not Resolved]
  - Muscle injury [Not Recovered/Not Resolved]
